FAERS Safety Report 19993588 (Version 1)
Quarter: 2021Q4

REPORT INFORMATION
  Report Type: Spontaneous
  Country: US (occurrence: US)
  Receive Date: 20211026
  Receipt Date: 20211026
  Transmission Date: 20220303
  Serious: Yes (Death)
  Sender: FDA-Public Use
  Company Number: US-GW PHARMA-202110USGW05053

PATIENT

DRUGS (1)
  1. EPIDIOLEX [Suspect]
     Active Substance: CANNABIDIOL
     Indication: Epilepsy
     Dosage: 29.9 MG/KG, 1100 MILLIGRAM, BID
     Route: 048
     Dates: start: 2019

REACTIONS (2)
  - Death [Fatal]
  - Prescribed overdose [Unknown]

NARRATIVE: CASE EVENT DATE: 20211013
